FAERS Safety Report 8086055-4 (Version None)
Quarter: 2012Q1

REPORT INFORMATION
  Report Type: 
  Country: None (occurrence: None)
  Receive Date: 20120128
  Receipt Date: 20110605
  Transmission Date: 20120608
  Serious: No
  Sender: FDA-Public Use
  Company Number: US-ABBOTT-11P-163-0731594-00

PATIENT
  Age: 21 Year
  Sex: Female

DRUGS (6)
  1. HUMIRA [Suspect]
     Indication: CROHN'S DISEASE
     Route: 058
     Dates: start: 20110310
  2. OXYCODONE HCL AND ACETAMINOPHEN [Concomitant]
     Indication: BACK PAIN
  3. ALBUTEROL [Concomitant]
     Indication: WHEEZING
     Route: 055
  4. AZAPROPAZONE [Concomitant]
     Indication: CROHN'S DISEASE
     Dosage: 100 MG DAILY
  5. CELEBREX [Concomitant]
     Indication: HEADACHE
     Dosage: 200 MG DAILY
  6. ORTHO TRI-CYCLEN [Concomitant]
     Indication: CONTRACEPTION

REACTIONS (3)
  - INJECTION SITE PAIN [None]
  - WHEEZING [None]
  - MUSCLE STRAIN [None]
